FAERS Safety Report 18251953 (Version 1)
Quarter: 2020Q3

REPORT INFORMATION
  Report Type: Spontaneous
  Country: DE (occurrence: DE)
  Receive Date: 20200910
  Receipt Date: 20200910
  Transmission Date: 20201103
  Serious: Yes (Other)
  Sender: FDA-Public Use
  Company Number: DE-DRREDDYS-GER/GER/19/0113034

PATIENT
  Age: 54 Year
  Sex: Male

DRUGS (3)
  1. PREGABALIN BETA 25 MG HARTKAPSELN [Suspect]
     Active Substance: PREGABALIN
     Indication: NEURALGIA
  2. PREGABALIN BETA 50 MG HARTKAPSELN [Suspect]
     Active Substance: PREGABALIN
     Indication: NEURALGIA
  3. PREGABALIN BETA 75 MG HARTKAPSELN [Suspect]
     Active Substance: PREGABALIN
     Indication: NEURALGIA

REACTIONS (7)
  - Gait disturbance [Unknown]
  - Diplopia [Recovered/Resolved]
  - Libido increased [Unknown]
  - Atrial fibrillation [Unknown]
  - Weight increased [Unknown]
  - Vision blurred [Recovered/Resolved]
  - Urinary incontinence [Unknown]

NARRATIVE: CASE EVENT DATE: 20200428
